FAERS Safety Report 19270506 (Version 1)
Quarter: 2021Q2

REPORT INFORMATION
  Report Type: Spontaneous
  Country: AU (occurrence: AU)
  Receive Date: 20210518
  Receipt Date: 20210518
  Transmission Date: 20210717
  Serious: Yes (Hospitalization)
  Sender: FDA-Public Use
  Company Number: AU-COLLEGIUM PHARMACEUTICAL, INC.-2021CGM00548

PATIENT
  Age: 9 Decade
  Sex: Female

DRUGS (1)
  1. TAPENTADOL [Suspect]
     Active Substance: TAPENTADOL
     Indication: PRODUCT USED FOR UNKNOWN INDICATION

REACTIONS (2)
  - Hallucination [Unknown]
  - Dementia [Unknown]
